FAERS Safety Report 8343854 (Version 10)
Quarter: 2012Q4

REPORT INFORMATION
  Report Type: 
  Country: US (occurrence: US)
  Receive Date: 20120119
  Receipt Date: 20121116
  Transmission Date: 20130627
  Serious: Yes (Hospitalization, Other)
  Sender: FDA-Public Use
  Company Number: US-009507513-1201USA02279

PATIENT

DRUGS (6)
  1. FOSAMAX [Suspect]
     Indication: HYPERSENSITIVITY
     Dosage: 10 mg, qd
     Route: 048
     Dates: start: 19990824
  2. FOSAMAX [Suspect]
     Dosage: 70 mg, UNK
     Route: 048
     Dates: start: 200006, end: 20060310
  3. BONIVA [Suspect]
     Indication: OSTEOPOROSIS
     Dosage: 150 mg, UNK
     Route: 048
     Dates: start: 200602, end: 201108
  4. ALLEGRA-D [Concomitant]
     Indication: HYPERSENSITIVITY
     Dates: start: 2003, end: 2006
  5. SYNTHROID [Concomitant]
     Indication: HYPOTHYROIDISM
  6. VITAMINS (UNSPECIFIED) [Concomitant]
     Dosage: UNK
     Dates: start: 19920101

REACTIONS (72)
  - Open reduction of fracture [Unknown]
  - Fall [Unknown]
  - Renal failure [Not Recovered/Not Resolved]
  - Arthropathy [Unknown]
  - Cerebrovascular accident [Unknown]
  - Hip fracture [Recovered/Resolved]
  - Low turnover osteopathy [Unknown]
  - Intervertebral disc degeneration [Unknown]
  - Cervical myelopathy [Unknown]
  - Spinal cord disorder [Unknown]
  - Vitamin D deficiency [Unknown]
  - Fracture delayed union [Unknown]
  - Osteoarthritis [Unknown]
  - Speech disorder [Unknown]
  - Adverse drug reaction [Unknown]
  - Migraine with aura [Unknown]
  - Intermittent claudication [Unknown]
  - Vasomotor rhinitis [Unknown]
  - Haemorrhoids [Unknown]
  - Diverticulum [Unknown]
  - Coronary artery disease [Unknown]
  - Weight decreased [Unknown]
  - Tinnitus [Unknown]
  - Palpitations [Unknown]
  - Transient ischaemic attack [Unknown]
  - Weight decreased [Unknown]
  - Hypertensive nephropathy [Unknown]
  - Stress urinary incontinence [Unknown]
  - Essential tremor [Unknown]
  - Blood disorder [Unknown]
  - Hypotension [Unknown]
  - Tachycardia [Unknown]
  - Left ventricular hypertrophy [Unknown]
  - Pulmonary hypertension [Unknown]
  - Hand fracture [Unknown]
  - Head injury [Unknown]
  - Adverse drug reaction [Unknown]
  - Fall [Unknown]
  - Essential tremor [Unknown]
  - Hypoaesthesia [Unknown]
  - Asthenia [Unknown]
  - Oestrogen deficiency [Unknown]
  - Osteopenia [Unknown]
  - Angiopathy [Not Recovered/Not Resolved]
  - Drug hypersensitivity [Unknown]
  - Neck pain [Unknown]
  - Gastrooesophageal reflux disease [Unknown]
  - Nausea [Unknown]
  - Dysphagia [Unknown]
  - Musculoskeletal chest pain [Unknown]
  - Diarrhoea [Unknown]
  - Femur fracture [Recovered/Resolved]
  - Anaemia postoperative [Recovered/Resolved]
  - Intracranial aneurysm [Unknown]
  - Hypoxia [Unknown]
  - Aortic stenosis [Unknown]
  - Thyroid neoplasm [Unknown]
  - Respiratory failure [Unknown]
  - Pneumonia [Unknown]
  - Acquired oesophageal web [Unknown]
  - Open reduction of fracture [Unknown]
  - Hip fracture [Unknown]
  - Femur fracture [Unknown]
  - Arthritis [Unknown]
  - Joint arthroplasty [Unknown]
  - Aortic aneurysm [Unknown]
  - Hepatic cyst [Unknown]
  - Splenic cyst [Unknown]
  - Renal cyst [Unknown]
  - Chest pain [Recovered/Resolved]
  - Back pain [Recovered/Resolved]
  - Oesophageal dilation procedure [Unknown]
